FAERS Safety Report 5245414-5 (Version None)
Quarter: 2007Q1

REPORT INFORMATION
  Report Type: 
  Country: None (occurrence: None)
  Receive Date: 20070223
  Receipt Date: 20070221
  Transmission Date: 20070707
  Serious: Yes (Death, Hospitalization, Other)
  Sender: FDA-Public Use
  Company Number: US-SHR-US-2006-024422

PATIENT
  Age: 53 Year
  Sex: Female
  Weight: 90.7 kg

DRUGS (7)
  1. CLIMARA [Suspect]
     Indication: MENOPAUSE
     Dosage: .05 MG/D, CONT
     Route: 062
     Dates: start: 19980101, end: 19980101
  2. PREMPRO [Suspect]
     Indication: MENOPAUSE
     Dosage: 0.625/2.5 MG, UNK
     Dates: start: 19970101, end: 19970101
  3. MEDROXYPROGESTERONE [Suspect]
     Indication: MENOPAUSE
     Dosage: 2.5 MG, UNK
     Dates: start: 19980101, end: 20000101
  4. PROVERA [Suspect]
     Indication: MENOPAUSE
     Dosage: 2.5 MG, UNK
     Dates: start: 19980101, end: 19980101
  5. PREMARIN [Suspect]
     Indication: MENOPAUSE
     Dosage: 1.25 MG, UNK
     Dates: start: 19980101, end: 19990101
  6. KERLONE [Concomitant]
     Indication: TACHYCARDIA
     Dosage: 10 MG/D, UNK
  7. XANAX [Concomitant]
     Dosage: .025 MG, UNK

REACTIONS (8)
  - BREAST CANCER METASTATIC [None]
  - CEREBROVASCULAR ACCIDENT [None]
  - DEEP VEIN THROMBOSIS [None]
  - HEPATITIS [None]
  - OESTROGEN RECEPTOR ASSAY POSITIVE [None]
  - PROGESTERONE RECEPTOR ASSAY POSITIVE [None]
  - RENAL FAILURE ACUTE [None]
  - RESPIRATORY FAILURE [None]
